FAERS Safety Report 19164174 (Version 1)
Quarter: 2021Q2

REPORT INFORMATION
  Report Type: Spontaneous
  Country: US (occurrence: US)
  Receive Date: 20210421
  Receipt Date: 20210421
  Transmission Date: 20210717
  Serious: No
  Sender: FDA-Public Use
  Company Number: US-JNJFOC-20210421202

PATIENT
  Age: 39 Year
  Sex: Female

DRUGS (11)
  1. TYLENOL [Suspect]
     Active Substance: ACETAMINOPHEN
     Indication: ARTHRALGIA
  2. IBUPROFEN. [Suspect]
     Active Substance: IBUPROFEN
     Indication: PYREXIA
     Route: 065
     Dates: start: 20210406
  3. TYLENOL [Suspect]
     Active Substance: ACETAMINOPHEN
     Indication: HYPERHIDROSIS
  4. TYLENOL [Suspect]
     Active Substance: ACETAMINOPHEN
     Indication: CHILLS
  5. TYLENOL [Suspect]
     Active Substance: ACETAMINOPHEN
     Indication: PAIN
     Route: 065
     Dates: start: 20210406
  6. IBUPROFEN. [Suspect]
     Active Substance: IBUPROFEN
     Indication: HYPERHIDROSIS
  7. IBUPROFEN. [Suspect]
     Active Substance: IBUPROFEN
     Indication: ARTHRALGIA
  8. IBUPROFEN. [Suspect]
     Active Substance: IBUPROFEN
     Indication: CHILLS
  9. IBUPROFEN. [Suspect]
     Active Substance: IBUPROFEN
     Indication: PAIN
  10. COVID?19 VACCINE NOS. [Concomitant]
     Active Substance: COVID-19 VACCINE NOS
     Indication: PRODUCT USED FOR UNKNOWN INDICATION
     Route: 065
     Dates: start: 20210406
  11. TYLENOL [Suspect]
     Active Substance: ACETAMINOPHEN
     Indication: PYREXIA

REACTIONS (4)
  - Therapeutic response unexpected [Unknown]
  - Cough [Not Recovered/Not Resolved]
  - Upper-airway cough syndrome [Not Recovered/Not Resolved]
  - Product use in unapproved indication [Unknown]

NARRATIVE: CASE EVENT DATE: 20210406
